FAERS Safety Report 15946550 (Version 3)
Quarter: 2019Q2

REPORT INFORMATION
  Report Type: Spontaneous
  Country: US (occurrence: US)
  Receive Date: 20190211
  Receipt Date: 20190522
  Transmission Date: 20190711
  Serious: Yes (Other)
  Sender: FDA-Public Use
  Company Number: US-ASTRAZENECA-2018SF21664

PATIENT
  Sex: Male

DRUGS (27)
  1. NEXIUM [Suspect]
     Active Substance: ESOMEPRAZOLE MAGNESIUM
     Route: 048
     Dates: start: 2012, end: 2015
  2. TRAMADOL. [Concomitant]
     Active Substance: TRAMADOL
  3. HYDROCODONE-ACETAMINOPHEN [Concomitant]
     Active Substance: ACETAMINOPHEN\HYDROCODONE
  4. TORSEMIDE. [Concomitant]
     Active Substance: TORSEMIDE
  5. LYRICA [Concomitant]
     Active Substance: PREGABALIN
  6. NEXIUM [Suspect]
     Active Substance: ESOMEPRAZOLE MAGNESIUM
     Route: 048
     Dates: start: 201312, end: 201506
  7. NEXIUM [Suspect]
     Active Substance: ESOMEPRAZOLE MAGNESIUM
     Route: 048
     Dates: start: 20131213, end: 20150623
  8. OLANZAPINE. [Concomitant]
     Active Substance: OLANZAPINE
  9. CEFUROXIME. [Concomitant]
     Active Substance: CEFUROXIME
  10. PIOGLITAZONE. [Concomitant]
     Active Substance: PIOGLITAZONE
  11. QUETIAPINE. [Concomitant]
     Active Substance: QUETIAPINE
  12. PROAIR HFA [Concomitant]
     Active Substance: ALBUTEROL SULFATE
  13. SEROQUEL [Concomitant]
     Active Substance: QUETIAPINE FUMARATE
  14. DIVALPROEX [Concomitant]
     Active Substance: DIVALPROEX SODIUM
  15. RANITIDINE. [Concomitant]
     Active Substance: RANITIDINE
  16. LOSARTAN. [Concomitant]
     Active Substance: LOSARTAN
  17. AZITHROMYCIN ANHYDROUS. [Concomitant]
     Active Substance: AZITHROMYCIN ANHYDROUS
  18. METFORMIN [Concomitant]
     Active Substance: METFORMIN HYDROCHLORIDE
  19. OXYCODONE [Concomitant]
     Active Substance: OXYCODONE
  20. POTASSIUM CHLORIDE. [Concomitant]
     Active Substance: POTASSIUM CHLORIDE
  21. LANTUS [Concomitant]
     Active Substance: INSULIN GLARGINE
  22. ONGLYZA [Concomitant]
     Active Substance: SAXAGLIPTIN HYDROCHLORIDE
  23. SIMVASTATIN. [Concomitant]
     Active Substance: SIMVASTATIN
  24. FLOVENT [Concomitant]
     Active Substance: FLUTICASONE PROPIONATE
  25. PROMETHAZINE [Concomitant]
     Active Substance: PROMETHAZINE\PROMETHAZINE HYDROCHLORIDE
  26. ROPINIROLE. [Concomitant]
     Active Substance: ROPINIROLE
  27. OXYBUTYNIN. [Concomitant]
     Active Substance: OXYBUTYNIN CHLORIDE

REACTIONS (4)
  - Chronic kidney disease [Unknown]
  - Renal failure [Unknown]
  - Acute kidney injury [Unknown]
  - Renal injury [Unknown]
